FAERS Safety Report 9916320 (Version 1)
Quarter: 2014Q1

REPORT INFORMATION
  Report Type: Spontaneous
  Country: FR (occurrence: FR)
  Receive Date: 20140221
  Receipt Date: 20140221
  Transmission Date: 20141002
  Serious: Yes (Other)
  Sender: FDA-Public Use
  Company Number: PHHY2014FR019594

PATIENT
  Age: 81 Year
  Sex: Male

DRUGS (6)
  1. EXELON PATCH [Suspect]
     Indication: DEMENTIA ALZHEIMER^S TYPE
     Dosage: 9.5 MG/24 H
     Route: 062
  2. LEPONEX / CLOZARIL (CLOZAPINE) [Suspect]
     Indication: DEMENTIA WITH LEWY BODIES
     Dosage: 1 DF, DAILY
     Route: 048
     Dates: start: 201305
  3. LEPONEX / CLOZARIL (CLOZAPINE) [Suspect]
     Dosage: 1.5 DF, DAILY
     Route: 048
     Dates: start: 20140125
  4. LEPONEX / CLOZARIL (CLOZAPINE) [Suspect]
     Dosage: 1.5 DF IN MORNING AND 0.5 IN EVENING, DAILY
     Route: 048
     Dates: start: 20140128
  5. LEPONEX / CLOZARIL (CLOZAPINE) [Suspect]
     Dosage: 1DF IN MORNING AND 1 IN EVENING
     Route: 048
     Dates: start: 20140129
  6. XATRAL [Concomitant]
     Indication: BENIGN PROSTATIC HYPERPLASIA
     Dosage: 1 DF (10 MG), DAILY
     Route: 048
     Dates: end: 20140124

REACTIONS (4)
  - Bundle branch block left [Not Recovered/Not Resolved]
  - Bundle branch block right [Not Recovered/Not Resolved]
  - Atrioventricular block second degree [Recovered/Resolved]
  - Bradycardia [Unknown]
